FAERS Safety Report 10184687 (Version 2)
Quarter: 2014Q2

REPORT INFORMATION
  Report Type: Spontaneous
  Country: PL (occurrence: PL)
  Receive Date: 20140521
  Receipt Date: 20140521
  Transmission Date: 20141212
  Serious: Yes (Other)
  Sender: FDA-Public Use
  Company Number: PL-BAYER-2014-064032

PATIENT
  Sex: 0

DRUGS (1)
  1. BETAFERON [Suspect]
     Dosage: UNK
     Route: 058

REACTIONS (3)
  - Multiple sclerosis relapse [None]
  - Nuclear magnetic resonance imaging abnormal [None]
  - Drug ineffective [None]
